FAERS Safety Report 7530924-8 (Version None)
Quarter: 2011Q2

REPORT INFORMATION
  Report Type: 
  Country: None (occurrence: None)
  Receive Date: 20110608
  Receipt Date: 20110525
  Transmission Date: 20111010
  Serious: Yes (Other)
  Sender: FDA-Public Use
  Company Number: CA-ELI_LILLY_AND_COMPANY-CA201105007319

PATIENT
  Sex: Male

DRUGS (14)
  1. TEMAZEPAM [Concomitant]
  2. AMITRIPTYLINE HCL [Concomitant]
  3. CLONAZEPAM [Concomitant]
  4. COGENTIN [Concomitant]
  5. ZYPREXA [Suspect]
     Indication: PERSONALITY DISORDER
     Dosage: 10 MG, EACH EVENING
     Dates: start: 20020708, end: 20030714
  6. CELEXA [Concomitant]
  7. VALPROIC ACID [Concomitant]
  8. SEROQUEL [Concomitant]
  9. LOXAPINE HCL [Concomitant]
  10. CHLORAL HYDRATE [Concomitant]
  11. REMERON [Concomitant]
  12. TRAZODONE HCL [Concomitant]
  13. VALPROATE SODIUM [Concomitant]
  14. PROPRANOLOL [Concomitant]

REACTIONS (13)
  - DYSPNOEA [None]
  - PARAESTHESIA [None]
  - PAIN IN EXTREMITY [None]
  - BLOOD GLUCOSE DECREASED [None]
  - OEDEMA PERIPHERAL [None]
  - DRUG INEFFECTIVE [None]
  - HYPERCHOLESTEROLAEMIA [None]
  - PANCREATITIS [None]
  - WEIGHT INCREASED [None]
  - BLINDNESS [None]
  - HYPERGLYCAEMIA [None]
  - TYPE 2 DIABETES MELLITUS [None]
  - HYPERLIPIDAEMIA [None]
